FAERS Safety Report 13020464 (Version 9)
Quarter: 2017Q1

REPORT INFORMATION
  Report Type: Report from Study
  Country: US (occurrence: US)
  Receive Date: 20161212
  Receipt Date: 20170316
  Transmission Date: 20170428
  Serious: Yes (Hospitalization)
  Sender: FDA-Public Use
  Company Number: US-ACTELION-A-NJ2016-146540

PATIENT
  Age: 82 Year
  Sex: Female
  Weight: 66.67 kg

DRUGS (9)
  1. OPSUMIT [Suspect]
     Active Substance: MACITENTAN
     Indication: PULMONARY ARTERIAL HYPERTENSION
     Dosage: 10 MG, QD
     Route: 048
     Dates: start: 20141030
  2. UPTRAVI [Concomitant]
     Active Substance: SELEXIPAG
     Indication: PULMONARY ARTERIAL HYPERTENSION
     Dosage: 200 MCG, BID
     Route: 048
     Dates: start: 201702
  3. DILTIAZEM. [Concomitant]
     Active Substance: DILTIAZEM
  4. TYVASO [Suspect]
     Active Substance: TREPROSTINIL
     Indication: PULMONARY ARTERIAL HYPERTENSION
     Dosage: 18-54 MCG, QID
     Route: 055
     Dates: start: 20120530
  5. OPSUMIT [Suspect]
     Active Substance: MACITENTAN
     Dosage: 10 MG, QD
     Route: 048
  6. TYVASO [Suspect]
     Active Substance: TREPROSTINIL
     Dosage: 18-72 MCG, QID
     Route: 055
  7. ADEMPAS [Concomitant]
     Active Substance: RIOCIGUAT
  8. WARFARIN [Concomitant]
     Active Substance: WARFARIN
  9. LIPITOR [Concomitant]
     Active Substance: ATORVASTATIN CALCIUM

REACTIONS (20)
  - Blood pressure fluctuation [Unknown]
  - Headache [Unknown]
  - Weight decreased [Unknown]
  - Dyspnoea [Unknown]
  - Medication error [Unknown]
  - Diarrhoea [Unknown]
  - Abdominal discomfort [Unknown]
  - Decreased appetite [Unknown]
  - Ulcer haemorrhage [Unknown]
  - Fall [Unknown]
  - Hypotension [Unknown]
  - Transient ischaemic attack [Unknown]
  - Abdominal pain [Unknown]
  - Bladder disorder [Unknown]
  - Nausea [Unknown]
  - Constipation [Unknown]
  - Dizziness [Unknown]
  - Vomiting [Unknown]
  - Increased tendency to bruise [Unknown]
  - Anaemia [Unknown]

NARRATIVE: CASE EVENT DATE: 20161125
